FAERS Safety Report 6800837-5 (Version None)
Quarter: 2010Q2

REPORT INFORMATION
  Report Type: 
  Country: None (occurrence: None)
  Receive Date: 20100629
  Receipt Date: 20100309
  Transmission Date: 20101027
  Serious: Yes (Hospitalization)
  Sender: FDA-Public Use
  Company Number: US-ASTRAZENECA-2007UW25332

PATIENT
  Age: 50 Year
  Sex: Male
  Weight: 108.9 kg

DRUGS (22)
  1. SEROQUEL [Suspect]
     Indication: BIPOLAR DISORDER
     Dosage: 200, 400, AND/OR 600 MG
     Route: 048
     Dates: start: 19980101, end: 20050101
  2. SEROQUEL [Suspect]
     Indication: BIPOLAR I DISORDER
     Dosage: 200, 400, AND/OR 600 MG
     Route: 048
     Dates: start: 19980101, end: 20050101
  3. SEROQUEL [Suspect]
     Dosage: 100MG-600MG
     Route: 048
     Dates: start: 19980312
  4. SEROQUEL [Suspect]
     Dosage: 100MG-600MG
     Route: 048
     Dates: start: 19980312
  5. SEROQUEL [Suspect]
     Route: 048
     Dates: start: 20050323
  6. SEROQUEL [Suspect]
     Route: 048
     Dates: start: 20050323
  7. RISPERDAL [Concomitant]
  8. ZYPREXA [Concomitant]
     Dates: start: 19980312
  9. WELLBUTRIN [Concomitant]
  10. EFFEXOR [Concomitant]
  11. LAMICTAL [Concomitant]
     Indication: BIPOLAR DISORDER
     Dosage: STRENGTH- 25MG, 100MG, 200MG  DOSE-25MG-400MG DAILY
     Dates: start: 19980609
  12. LAMICTAL [Concomitant]
     Route: 048
     Dates: start: 20050323
  13. LITHIUM [Concomitant]
  14. VICOPROFEN [Concomitant]
  15. FLUVOXAMINE MALEATE [Concomitant]
  16. AMBIEN [Concomitant]
  17. LEVOXYL [Concomitant]
  18. VIAGRA [Concomitant]
  19. CLONAZEPAM [Concomitant]
     Route: 048
     Dates: start: 20050323
  20. GLYBURIDE MICRONIZE [Concomitant]
  21. DEPAKOTE [Concomitant]
     Dosage: DOSE-100MG-1000MG DAILY
     Dates: start: 19980609
  22. TEMAZEPAM [Concomitant]
     Dosage: 15 MG PO QHS PRN
     Route: 048
     Dates: start: 20050322

REACTIONS (10)
  - ALLERGY TO ARTHROPOD BITE [None]
  - BIPOLAR I DISORDER [None]
  - DIABETES MELLITUS [None]
  - HYPOGLYCAEMIA [None]
  - JOINT INJURY [None]
  - LOCALISED INFECTION [None]
  - NEUROPATHY PERIPHERAL [None]
  - OBESITY [None]
  - SUICIDAL IDEATION [None]
  - TYPE 2 DIABETES MELLITUS [None]
